FAERS Safety Report 9314289 (Version 4)
Quarter: 2013Q3

REPORT INFORMATION
  Report Type: Report from Study
  Country: CA (occurrence: CA)
  Receive Date: 20130529
  Receipt Date: 20130814
  Transmission Date: 20140515
  Serious: Yes (Death, Hospitalization, Other)
  Sender: FDA-Public Use
  Company Number: PHHY2013CA053675

PATIENT
  Sex: Female

DRUGS (2)
  1. ZOMETA [Suspect]
     Indication: PLASMA CELL MYELOMA
     Dosage: 3 MG, EVERY 4 WEEKS
     Route: 042
     Dates: start: 20121206
  2. ZOMETA [Suspect]
     Dosage: 4 MG, EVERY 4 WEEKS
     Route: 042
     Dates: start: 20121206, end: 20130812

REACTIONS (6)
  - Death [Fatal]
  - Malaise [Unknown]
  - Terminal state [Unknown]
  - Disorientation [Unknown]
  - Osteoporosis [Unknown]
  - Pathological fracture [Unknown]
